FAERS Safety Report 21400100 (Version 1)
Quarter: 2022Q4

REPORT INFORMATION
  Report Type: Spontaneous
  Country: DE (occurrence: DE)
  Receive Date: 20221002
  Receipt Date: 20221002
  Transmission Date: 20230113
  Serious: Yes (Hospitalization)
  Sender: FDA-Public Use
  Company Number: DE-ADRED-07854-01

PATIENT
  Age: 64 Year
  Sex: Male
  Weight: 94 kg

DRUGS (5)
  1. MINOCYCLINE [Interacting]
     Active Substance: MINOCYCLINE HYDROCHLORIDE
     Indication: Product used for unknown indication
     Dosage: 100 MILLIGRAM DAILY; 50 MG, 1-0-1-0
  2. THEOPHYLLINE [Interacting]
     Active Substance: THEOPHYLLINE
     Indication: Product used for unknown indication
     Dosage: 375 MILLIGRAM DAILY; 375 MG, 1-0-0-0
  3. ATORVASTATIN [Concomitant]
     Active Substance: ATORVASTATIN
     Indication: Product used for unknown indication
     Dosage: 80 MILLIGRAM DAILY; 80 MG, 0-0-1-0
  4. CANDESARTAN [Concomitant]
     Active Substance: CANDESARTAN
     Indication: Product used for unknown indication
     Dosage: 16 MILLIGRAM DAILY; 8 MG, 1-0-1-0
  5. ALLOPURINOL [Concomitant]
     Active Substance: ALLOPURINOL
     Indication: Product used for unknown indication
     Dosage: 300 MILLIGRAM DAILY; 300 MG, 1-0-0-0

REACTIONS (5)
  - Somnolence [Unknown]
  - Depressed level of consciousness [Unknown]
  - Muscular weakness [Unknown]
  - Product used for unknown indication [Unknown]
  - Labelled drug-drug interaction medication error [Unknown]
